FAERS Safety Report 15548249 (Version 1)
Quarter: 2018Q4

REPORT INFORMATION
  Report Type: Spontaneous
  Country: DE (occurrence: DE)
  Receive Date: 20181024
  Receipt Date: 20181024
  Transmission Date: 20190205
  Serious: Yes (Other)
  Sender: FDA-Public Use
  Company Number: DE-GILEAD-2018-0366136

PATIENT
  Age: 39 Year
  Sex: Male
  Weight: 66.8 kg

DRUGS (1)
  1. EVIPLERA [Suspect]
     Active Substance: EMTRICITABINE\RILPIVIRINE\TENOFOVIR DISOPROXIL FUMARATE
     Indication: HIV INFECTION
     Dosage: 1 DF, UNK
     Route: 048
     Dates: start: 20130304

REACTIONS (3)
  - Drug ineffective [Unknown]
  - Hepatitis B reactivation [Not Recovered/Not Resolved]
  - Hepatitis B DNA assay positive [Not Recovered/Not Resolved]

NARRATIVE: CASE EVENT DATE: 20130304
